FAERS Safety Report 4311009-0 (Version None)
Quarter: 2004Q1

REPORT INFORMATION
  Report Type: 
  Country: None (occurrence: None)
  Receive Date: 20040303
  Receipt Date: 20030710
  Transmission Date: 20041129
  Serious: Yes (Hospitalization)
  Sender: FDA-Public Use
  Company Number: 2004BL000001

PATIENT
  Age: 70 Year
  Sex: Male

DRUGS (1)
  1. CARTEOL 1% (CARTEOL 1%) [Suspect]
     Indication: GLAUCOMA

REACTIONS (1)
  - MYCOSIS FUNGOIDES [None]
